FAERS Safety Report 20625928 (Version 3)
Quarter: 2022Q2

REPORT INFORMATION
  Report Type: Other
  Country: US (occurrence: None)
  Receive Date: 20220323
  Receipt Date: 20220524
  Transmission Date: 20220720
  Serious: Yes (Hospitalization, Other)
  Sender: FDA-Public Use
  Company Number: US-ROCHE-3049023

PATIENT
  Age: 48 Year
  Sex: Female
  Weight: 54.480 kg

DRUGS (21)
  1. OCREVUS [Suspect]
     Active Substance: OCRELIZUMAB
     Indication: Relapsing-remitting multiple sclerosis
     Dosage: (PRESCRIBED AS INFUSE 300 MG IN DAY 1 AND 14 THEN 600 MG EVERY 24 WEEKS)?NEXT DATE OF TREATMENT: 23/
     Route: 042
     Dates: start: 20210809, end: 202108
  2. GAMUNEX [Concomitant]
     Active Substance: HUMAN IMMUNOGLOBULIN G
     Dosage: ONGOING: YES
     Route: 042
     Dates: start: 2020
  3. MOTEGRITY [Concomitant]
     Active Substance: PRUCALOPRIDE SUCCINATE
     Dosage: ONGOING YES
     Route: 048
     Dates: start: 202202
  4. DIAZEPAM [Concomitant]
     Active Substance: DIAZEPAM
     Dosage: ONGOING YES
     Route: 048
     Dates: start: 2021
  5. DIAZEPAM [Concomitant]
     Active Substance: DIAZEPAM
     Dosage: ONGOING YES
     Route: 048
     Dates: start: 2021
  6. ESTRADIOL [Concomitant]
     Active Substance: ESTRADIOL
     Dosage: ONGOING YES
  7. FAMOTIDINE [Concomitant]
     Active Substance: FAMOTIDINE
     Route: 048
  8. DEXTROAMPHETAMINE [Concomitant]
     Active Substance: DEXTROAMPHETAMINE
     Dosage: ONGOING YES
     Route: 048
  9. TIZANIDINE [Concomitant]
     Active Substance: TIZANIDINE
     Route: 048
     Dates: start: 2021
  10. BACLOFEN [Concomitant]
     Active Substance: BACLOFEN
     Route: 048
  11. FOLIC ACID [Concomitant]
     Active Substance: FOLIC ACID
     Route: 048
  12. TEMAZEPAM [Concomitant]
     Active Substance: TEMAZEPAM
     Dosage: ONGOING YES
     Route: 048
     Dates: start: 2021
  13. LACTOBACILLUS ACIDOPHILUS [Concomitant]
     Active Substance: LACTOBACILLUS ACIDOPHILUS
     Route: 048
  14. HYDROCHLOROTHIAZIDE\TRIAMTERENE [Concomitant]
     Active Substance: HYDROCHLOROTHIAZIDE\TRIAMTERENE
     Dosage: ONGOING YES
     Route: 048
     Dates: start: 2019
  15. RESTASIS [Concomitant]
     Active Substance: CYCLOSPORINE
     Dosage: ONGOING YES
     Dates: start: 2017
  16. PROAIR HFA [Concomitant]
     Active Substance: ALBUTEROL SULFATE
     Dosage: ONGOING YES
     Route: 055
  17. OXYCODONE [Concomitant]
     Active Substance: OXYCODONE
     Dosage: ONGOING YES
     Dates: start: 2018
  18. OMEPRAZOLE [Concomitant]
     Active Substance: OMEPRAZOLE
     Dosage: ONGOING YES
     Route: 048
  19. COLACE [Concomitant]
     Active Substance: DOCUSATE SODIUM
     Route: 048
  20. LEVOTHYROXINE [Concomitant]
     Active Substance: LEVOTHYROXINE
     Dosage: ONGOING YES
     Route: 048
  21. METOCLOPRAMIDE HYDROCHLORIDE [Concomitant]
     Active Substance: METOCLOPRAMIDE HYDROCHLORIDE
     Dosage: ONGOING: YES
     Route: 048
     Dates: start: 202202

REACTIONS (7)
  - Gastrointestinal disorder [Recovered/Resolved]
  - Pneumonia klebsiella [Unknown]
  - Ileus [Not Recovered/Not Resolved]
  - Pneumonia pseudomonal [Unknown]
  - Dyspepsia [Not Recovered/Not Resolved]
  - Stomatitis [Unknown]
  - Nausea [Not Recovered/Not Resolved]

NARRATIVE: CASE EVENT DATE: 20210924
